FAERS Safety Report 5423958-0 (Version None)
Quarter: 2007Q3

REPORT INFORMATION
  Report Type: 
  Country: None (occurrence: None)
  Receive Date: 20070823
  Receipt Date: 20070813
  Transmission Date: 20080115
  Serious: Yes (Other)
  Sender: FDA-Public Use
  Company Number: US-ELI_LILLY_AND_COMPANY-US200705006135

PATIENT
  Age: 49 Year
  Sex: Male
  Weight: 86.621 kg

DRUGS (2)
  1. DULOXETINE HYDROCHLORIDE [Suspect]
     Indication: SOCIAL PHOBIA
     Dosage: 60 MG, UNK
     Route: 048
     Dates: start: 20070416, end: 20070523
  2. *PLACEBO [Suspect]
     Indication: SOCIAL PHOBIA
     Route: 048
     Dates: start: 20070516, end: 20070523

REACTIONS (8)
  - ALANINE AMINOTRANSFERASE INCREASED [None]
  - ASPARTATE AMINOTRANSFERASE INCREASED [None]
  - BLOOD CREATINE PHOSPHOKINASE INCREASED [None]
  - EXCESSIVE EXERCISE [None]
  - INFECTION [None]
  - LIVER FUNCTION TEST ABNORMAL [None]
  - OEDEMA PERIPHERAL [None]
  - RHABDOMYOLYSIS [None]
